FAERS Safety Report 5426466-6 (Version None)
Quarter: 2007Q3

REPORT INFORMATION
  Report Type: 
  Country: None (occurrence: None)
  Receive Date: 20070731
  Receipt Date: 20070508
  Transmission Date: 20080115
  Serious: No
  Sender: FDA-Public Use
  Company Number: US200704004640

PATIENT
  Age: 68 Year
  Sex: Female
  Weight: 113.8 kg

DRUGS (7)
  1. BYETTA [Suspect]
     Indication: TYPE 2 DIABETES MELLITUS
     Dosage: 5 UG, DAILY (1/D), SUBCUTANEOUS : 10 UG, 2/D, SUBCUTANEOUS : 5 UG, SUBCUTANEOUS
     Route: 058
     Dates: start: 20070317, end: 20070319
  2. BYETTA [Suspect]
     Indication: TYPE 2 DIABETES MELLITUS
     Dosage: 5 UG, DAILY (1/D), SUBCUTANEOUS : 10 UG, 2/D, SUBCUTANEOUS : 5 UG, SUBCUTANEOUS
     Route: 058
     Dates: start: 20070320
  3. BYETTA [Suspect]
     Indication: TYPE 2 DIABETES MELLITUS
     Dosage: 5 UG, DAILY (1/D), SUBCUTANEOUS : 10 UG, 2/D, SUBCUTANEOUS : 5 UG, SUBCUTANEOUS
     Route: 058
     Dates: start: 20070417
  4. ACTOS/USA/(PIOGLITAZONE HYDROCHLORIDE) [Concomitant]
  5. HUMULIN MIX 30/70 (INSULIN HUMAN, INSULIN HUMAN INJECTION, ISOPHANE) [Concomitant]
  6. COZAAR [Concomitant]
  7. ZETIA [Concomitant]

REACTIONS (6)
  - APPETITE DISORDER [None]
  - BACK PAIN [None]
  - BLOOD GLUCOSE INCREASED [None]
  - CONSTIPATION [None]
  - NAUSEA [None]
  - WEIGHT DECREASED [None]
